FAERS Safety Report 24969563 (Version 1)
Quarter: 2025Q1

REPORT INFORMATION
  Report Type: Report from Study
  Country: IT (occurrence: IT)
  Receive Date: 20250214
  Receipt Date: 20250214
  Transmission Date: 20250408
  Serious: Yes (Other)
  Sender: TEVA
  Company Number: None

PATIENT
  Age: 20 Year
  Sex: Female

DRUGS (6)
  1. GABAPENTIN [Suspect]
     Active Substance: GABAPENTIN
     Indication: Product used for unknown indication
     Route: 048
     Dates: start: 20250104, end: 20250104
  2. DIENOGEST [Suspect]
     Active Substance: DIENOGEST
     Indication: Product used for unknown indication
     Route: 065
     Dates: start: 20250104, end: 20250104
  3. OXCARBAZEPINE [Suspect]
     Active Substance: OXCARBAZEPINE
     Indication: Product used for unknown indication
     Route: 048
     Dates: start: 20250104, end: 20250104
  4. LITHIUM SULFATE [Suspect]
     Active Substance: LITHIUM SULFATE
     Indication: Product used for unknown indication
     Route: 048
     Dates: start: 20250104, end: 20250104
  5. TAVOR (LORAZEPAM) [Suspect]
     Active Substance: LORAZEPAM
     Indication: Product used for unknown indication
     Route: 048
     Dates: start: 20250104, end: 20250104
  6. BREXPIPRAZOLE [Suspect]
     Active Substance: BREXPIPRAZOLE
     Indication: Product used for unknown indication
     Route: 048
     Dates: start: 20250104, end: 20250104

REACTIONS (3)
  - Cognitive disorder [Recovered/Resolved]
  - Suicide attempt [Recovered/Resolved]
  - Intentional overdose [Recovered/Resolved]

NARRATIVE: CASE EVENT DATE: 20250104
